FAERS Safety Report 9979531 (Version 2)
Quarter: 2014Q1

REPORT INFORMATION
  Report Type: Report from Study
  Country: US (occurrence: US)
  Receive Date: 20140306
  Receipt Date: 20140306
  Transmission Date: 20141002
  Serious: No
  Sender: FDA-Public Use
  Company Number: US-ABBVIE-13P-163-1149566-00

PATIENT
  Age: 36 Year
  Sex: Male

DRUGS (6)
  1. HUMIRA [Suspect]
     Indication: PSORIASIS
     Dosage: LOADING DOSE
     Dates: start: 20130913, end: 20130913
  2. HUMIRA [Suspect]
     Dates: start: 20130920, end: 20131004
  3. LISINOPRIL [Concomitant]
     Indication: HYPERTENSION
  4. TRAMADOL [Concomitant]
     Indication: BACK PAIN
  5. NITRO [Concomitant]
     Indication: CHEST PAIN
     Route: 060
  6. METOPROLOL [Concomitant]
     Indication: HYPERTENSION

REACTIONS (3)
  - Hypertension [Not Recovered/Not Resolved]
  - Headache [Recovered/Resolved]
  - Psoriasis [Not Recovered/Not Resolved]
